FAERS Safety Report 6294574-6 (Version None)
Quarter: 2009Q3

REPORT INFORMATION
  Report Type: 
  Country: None (occurrence: None)
  Receive Date: 20090803
  Receipt Date: 20090720
  Transmission Date: 20100115
  Serious: Yes (Congenital Anomaly, Other)
  Sender: FDA-Public Use
  Company Number: GB-CELGENEUS-167-20484-09071785

PATIENT
  Sex: Female
  Weight: 0.97 kg

DRUGS (24)
  1. INNOHEP [Suspect]
     Route: 064
  2. INNOHEP [Suspect]
     Route: 064
     Dates: start: 20001003, end: 20001102
  3. INNOHEP [Suspect]
     Route: 064
     Dates: start: 20001101, end: 20001101
  4. INNOHEP [Suspect]
     Route: 064
     Dates: start: 20001102, end: 20001102
  5. PREDNISOLONE [Concomitant]
     Route: 064
  6. FLUCONAZOLE [Concomitant]
     Route: 064
  7. AMOXICILLIN [Concomitant]
     Route: 064
  8. CALCIUM AND VITAMIN D [Concomitant]
     Route: 064
  9. LACTULOSE [Concomitant]
     Route: 064
  10. ASPIRIN [Concomitant]
     Route: 064
  11. PRILOSEC [Concomitant]
     Route: 064
  12. VANCOMYCIN [Concomitant]
     Route: 064
  13. GENTAMICIN [Concomitant]
     Route: 064
  14. CEFTAZIDIME [Concomitant]
     Route: 064
  15. FRUSEMIDE [Concomitant]
     Route: 064
  16. TAZOCIN [Concomitant]
     Route: 064
  17. BETAMETHASONE [Concomitant]
     Route: 064
     Dates: start: 20001028, end: 20001028
  18. AZATHIOPRINE [Concomitant]
     Route: 064
  19. METOCLOPRAMIDE [Concomitant]
     Route: 064
     Dates: start: 20001102, end: 20001102
  20. OMEPRAZOLE [Concomitant]
     Route: 064
     Dates: start: 20001102, end: 20001102
  21. LIGNOCAINE [Concomitant]
     Route: 064
     Dates: start: 20001102, end: 20001102
  22. BUPIVACAINE [Concomitant]
     Route: 064
     Dates: start: 20001102, end: 20001102
  23. FENTANYL [Concomitant]
     Indication: SPINAL ANAESTHESIA
     Route: 064
     Dates: start: 20001102, end: 20001102
  24. SYNTOCINON [Concomitant]
     Indication: LABOUR STIMULATION
     Route: 064
     Dates: start: 20001102, end: 20001102

REACTIONS (4)
  - FOETAL GROWTH RETARDATION [None]
  - JAUNDICE [None]
  - NEONATAL RESPIRATORY DISTRESS SYNDROME [None]
  - THROMBOCYTOPENIA [None]
